FAERS Safety Report 7005305-6 (Version None)
Quarter: 2010Q3

REPORT INFORMATION
  Report Type: 
  Country: None (occurrence: None)
  Receive Date: 20100921
  Receipt Date: 20100908
  Transmission Date: 20110219
  Serious: Yes (Hospitalization, Other)
  Sender: FDA-Public Use
  Company Number: US-BAYER-200937159NA

PATIENT
  Age: 20 Year
  Sex: Female
  Weight: 68 kg

DRUGS (15)
  1. YAZ [Suspect]
     Indication: ORAL CONTRACEPTION
     Route: 048
     Dates: start: 20070101, end: 20080101
  2. NEXIUM [Concomitant]
     Indication: DYSPEPSIA
  3. LEVSIN [Concomitant]
     Indication: ABDOMINAL PAIN UPPER
  4. PHENERGAN [Concomitant]
     Indication: ABDOMINAL PAIN UPPER
     Dosage: 20MG
  5. ANTIS [Concomitant]
     Indication: ABDOMINAL PAIN UPPER
  6. ALTERN [Concomitant]
     Indication: ABDOMINAL PAIN UPPER
  7. DIPHEN [Concomitant]
     Indication: ABDOMINAL PAIN UPPER
  8. ^GREEN LIZARD^ [Concomitant]
     Indication: ABDOMINAL PAIN UPPER
  9. OMEPRAZOLE [Concomitant]
  10. NEXIUM [Concomitant]
  11. LORTAB [Concomitant]
     Dosage: 7.5MG
  12. MACRODANTIN [Concomitant]
  13. NITROFUR MAC [Concomitant]
     Dosage: 50 MG
  14. PROMETHAZINE [Concomitant]
     Dosage: 25 MG
  15. HIDROCO/APAP [Concomitant]
     Dosage: 7.5 - 500TAB

REACTIONS (10)
  - ABDOMINAL PAIN LOWER [None]
  - ABDOMINAL PAIN UPPER [None]
  - CHOLECYSTITIS [None]
  - GASTRITIS [None]
  - GASTROOESOPHAGEAL REFLUX DISEASE [None]
  - NAUSEA [None]
  - OVARIAN CYST [None]
  - PELVIC PAIN [None]
  - VAGINAL HAEMORRHAGE [None]
  - VOMITING [None]
